FAERS Safety Report 9375374 (Version 1)
Quarter: 2013Q2

REPORT INFORMATION
  Report Type: Spontaneous
  Country: DE (occurrence: DE)
  Receive Date: 20130628
  Receipt Date: 20130628
  Transmission Date: 20140414
  Serious: Yes (Hospitalization)
  Sender: FDA-Public Use
  Company Number: DE-009507513-1306DEU010687

PATIENT
  Age: 58 Year
  Sex: Female

DRUGS (10)
  1. REMERGIL SOLTAB [Suspect]
     Dosage: 60 MG, QD
     Route: 048
     Dates: start: 20060220, end: 20060226
  2. REMERGIL SOLTAB [Suspect]
     Dosage: 15 MG, QD
     Route: 048
     Dates: start: 20051216, end: 20051218
  3. REMERGIL SOLTAB [Suspect]
     Dosage: 45 MG, QD
     Route: 048
     Dates: start: 20060119, end: 20060219
  4. REMERGIL SOLTAB [Suspect]
     Dosage: 45 MG, QD
     Route: 048
     Dates: start: 20060227, end: 20060227
  5. REMERGIL SOLTAB [Suspect]
     Dosage: 30 MG, QD
     Route: 048
     Dates: start: 20060228, end: 2006
  6. SAROTEN [Suspect]
     Indication: DEPRESSION
     Dosage: 75 MG, QD
     Route: 048
     Dates: start: 20060117, end: 20060226
  7. SAROTEN [Suspect]
     Dosage: 150 MG, QD
     Route: 048
     Dates: start: 20060227, end: 20060307
  8. SAROTEN [Suspect]
     Dosage: 125 MG, QD
     Route: 048
     Dates: start: 20060308
  9. EUTHYROX [Concomitant]
     Dosage: 50 MICROGRAM, QD
     Route: 048
  10. ZOCOR 10MG [Concomitant]
     Dosage: 10 MG, QD
     Route: 048

REACTIONS (1)
  - Restless legs syndrome [Recovered/Resolved]
